FAERS Safety Report 7489372-1 (Version None)
Quarter: 2011Q2

REPORT INFORMATION
  Report Type: 
  Country: None (occurrence: None)
  Receive Date: 20110518
  Receipt Date: 20110510
  Transmission Date: 20111010
  Serious: Yes (Other)
  Sender: FDA-Public Use
  Company Number: US-BAYER-200926367NA

PATIENT
  Age: 85 Year
  Sex: Male
  Weight: 99.773 kg

DRUGS (49)
  1. TRASYLOL [Suspect]
     Indication: CORONARY ARTERY BYPASS
     Dosage: 500 K/HR DRIP
     Route: 042
     Dates: start: 20030306, end: 20030306
  2. ASPIRIN [Concomitant]
     Indication: PRODUCT USED FOR UNKNOWN INDICATION
     Dosage: 81MG DAILY
     Route: 048
     Dates: start: 20030311
  3. MORPHINE [Concomitant]
     Indication: PRODUCT USED FOR UNKNOWN INDICATION
     Dosage: UNK
     Route: 042
     Dates: start: 20030306, end: 20030308
  4. POTASSIUM CHLORIDE [Concomitant]
     Indication: PRODUCT USED FOR UNKNOWN INDICATION
     Dosage: 20MEQ - 40MEQ AS NEEDED
     Route: 042
     Dates: start: 20030308, end: 20030308
  5. MEPERIDINE [Concomitant]
     Indication: PRODUCT USED FOR UNKNOWN INDICATION
     Dosage: 20MG AS NEEDED
     Route: 042
     Dates: start: 20030306, end: 20030306
  6. LOVENOX [Concomitant]
     Indication: PRODUCT USED FOR UNKNOWN INDICATION
     Dosage: 100MG ONE TIME DOSE
     Route: 058
     Dates: start: 20030304, end: 20030304
  7. AVANDIA [Concomitant]
     Indication: PRODUCT USED FOR UNKNOWN INDICATION
     Dosage: 2MG DAILY
     Route: 048
     Dates: start: 20030304, end: 20030311
  8. CEFUROXIME [Concomitant]
     Dosage: 1.5GRAM
     Route: 042
     Dates: start: 20030306, end: 20030306
  9. PROTAMINE SULFATE [Concomitant]
     Indication: PRODUCT USED FOR UNKNOWN INDICATION
     Dosage: 500MG
     Route: 042
     Dates: start: 20030306, end: 20030306
  10. FAMOTIDINE [Concomitant]
     Dosage: 20MG TWICE DAILY
     Route: 042
     Dates: start: 20030306, end: 20030311
  11. ZALEPLON [Concomitant]
     Indication: PRODUCT USED FOR UNKNOWN INDICATION
     Dosage: 5MG AS NEEDED
     Route: 048
     Dates: start: 20030304, end: 20030304
  12. INSULIN [Concomitant]
     Dosage: 10 UNITS
     Route: 042
     Dates: start: 20030306, end: 20030306
  13. CALCIUM CHLORIDE [Concomitant]
     Indication: PRODUCT USED FOR UNKNOWN INDICATION
     Dosage: 1GRAM
     Route: 042
     Dates: start: 20030306, end: 20030306
  14. LASIX [Concomitant]
     Dosage: 20MG
     Route: 042
     Dates: start: 20030306, end: 20030306
  15. TRASYLOL [Suspect]
     Dosage: 2 MILLION KIU LOADING DOSE
     Dates: start: 20030306, end: 20030306
  16. XANAX [Concomitant]
     Indication: PRODUCT USED FOR UNKNOWN INDICATION
     Dosage: 0.25MG AS NEEDED
     Route: 048
  17. CELEBREX [Concomitant]
     Indication: PRODUCT USED FOR UNKNOWN INDICATION
     Dosage: 1 TABLET DAILY
     Route: 048
     Dates: start: 20040128, end: 20040927
  18. DARVOCET-N 50 [Concomitant]
     Indication: PRODUCT USED FOR UNKNOWN INDICATION
     Dosage: 2 TABLETS AS NEEDED
     Route: 048
     Dates: start: 20030308, end: 20030311
  19. VERSED [Concomitant]
     Indication: PRODUCT USED FOR UNKNOWN INDICATION
     Dosage: 5MG ONE TIME DOSE
     Route: 030
     Dates: start: 20030304, end: 20030304
  20. COZAAR [Concomitant]
     Indication: PRODUCT USED FOR UNKNOWN INDICATION
     Dosage: 50MG DAILY
     Route: 048
     Dates: start: 20030304, end: 20030311
  21. VASOPRESSIN [Concomitant]
     Indication: PRODUCT USED FOR UNKNOWN INDICATION
     Dosage: TITRATED
     Route: 042
     Dates: start: 20030306, end: 20030306
  22. DIOVAN [Concomitant]
     Indication: PRODUCT USED FOR UNKNOWN INDICATION
     Dosage: 50MG DAILY LONG TERM
     Route: 048
     Dates: end: 20030311
  23. LEVOXYL [Concomitant]
     Indication: PRODUCT USED FOR UNKNOWN INDICATION
     Dosage: 100MCG DAILY
     Route: 048
  24. ATENOLOL [Concomitant]
     Indication: PRODUCT USED FOR UNKNOWN INDICATION
     Dosage: 50MG DAILY
     Route: 048
     Dates: end: 20030311
  25. LASIX [Concomitant]
     Dosage: 40MG
     Route: 042
     Dates: start: 20030307, end: 20030311
  26. FAMOTIDINE [Concomitant]
     Indication: PRODUCT USED FOR UNKNOWN INDICATION
     Dosage: 20MG TWICE DAILY
     Route: 048
     Dates: start: 20030306, end: 20030311
  27. INSULIN [Concomitant]
     Indication: PRODUCT USED FOR UNKNOWN INDICATION
     Dosage: UNK
     Route: 042
     Dates: start: 20030306, end: 20030310
  28. MORPHINE [Concomitant]
     Dosage: 4MG
     Route: 042
     Dates: start: 20030306, end: 20030306
  29. LIDOCAINE [Concomitant]
     Indication: PRODUCT USED FOR UNKNOWN INDICATION
     Dosage: 100MG
     Route: 042
     Dates: start: 20030306, end: 20030306
  30. ZOCOR [Concomitant]
     Indication: PRODUCT USED FOR UNKNOWN INDICATION
     Dosage: 10MG DAILY
     Route: 048
  31. NORVASC [Concomitant]
     Indication: PRODUCT USED FOR UNKNOWN INDICATION
     Dosage: 10MG DAILY
     Route: 048
     Dates: end: 20030311
  32. LASIX [Concomitant]
     Indication: PRODUCT USED FOR UNKNOWN INDICATION
     Dosage: 40MG
     Route: 048
     Dates: start: 20030307, end: 20030311
  33. DOBUTAMINE HYDROCHLORIDE [Concomitant]
     Indication: PRODUCT USED FOR UNKNOWN INDICATION
     Dosage: TITRATED
     Route: 042
     Dates: start: 20030306, end: 20030307
  34. GEMFIBROZIL [Concomitant]
     Indication: PRODUCT USED FOR UNKNOWN INDICATION
     Dosage: 600MG DAILY
     Route: 048
     Dates: start: 20030304, end: 20050307
  35. CEFUROXIME [Concomitant]
     Indication: PRODUCT USED FOR UNKNOWN INDICATION
     Dosage: 1.5GRAMS EVERY 12 HOURS
     Route: 042
     Dates: start: 20030306, end: 20030307
  36. MORPHINE [Concomitant]
     Dosage: UNK
     Route: 030
     Dates: start: 20030306, end: 20030308
  37. TEMAZ [Concomitant]
     Indication: PRODUCT USED FOR UNKNOWN INDICATION
     Dosage: 30MG AS NEEDED
     Route: 048
     Dates: start: 20030309, end: 20030309
  38. METOPROLOL TARTRATE [Concomitant]
     Indication: PRODUCT USED FOR UNKNOWN INDICATION
     Dosage: 25MG TWICE DAILY
     Route: 048
     Dates: start: 20030307, end: 20030311
  39. PERCOCET [Concomitant]
     Indication: PRODUCT USED FOR UNKNOWN INDICATION
     Dosage: 5/325MG AS NEEDED
     Route: 048
     Dates: start: 20030311
  40. TOPROL-XL [Concomitant]
     Indication: PRODUCT USED FOR UNKNOWN INDICATION
     Dosage: 50MG DAILLY
     Route: 048
     Dates: start: 20030311
  41. NIFEREX [Concomitant]
     Indication: PRODUCT USED FOR UNKNOWN INDICATION
     Dosage: 150MG TWICE DAILY
     Route: 048
     Dates: start: 20030309, end: 20030309
  42. HEPARIN [Concomitant]
     Indication: PRODUCT USED FOR UNKNOWN INDICATION
     Dosage: MULTIPLE DOSES
     Route: 042
     Dates: start: 20030306, end: 20030306
  43. NEO-SYNEPHRINOL [Concomitant]
     Indication: PRODUCT USED FOR UNKNOWN INDICATION
     Dosage: 2.3MG
     Route: 042
     Dates: start: 20030306, end: 20030306
  44. POTASSIUM CHLORIDE [Concomitant]
     Dosage: 20MEQ
     Route: 042
     Dates: start: 20030306, end: 20030306
  45. HYDROCHLOROTHIAZIDE [Concomitant]
     Indication: PRODUCT USED FOR UNKNOWN INDICATION
     Dosage: 25MG DAILY
     Route: 048
     Dates: start: 20030311
  46. ACTOS [Concomitant]
     Indication: PRODUCT USED FOR UNKNOWN INDICATION
     Dosage: 2MG DAILY
     Route: 048
     Dates: end: 20060109
  47. AMIODARONE HCL [Concomitant]
     Indication: PRODUCT USED FOR UNKNOWN INDICATION
     Dosage: 20MG THREE TIMES DAILY
     Route: 048
     Dates: start: 20030307
  48. INSULIN [Concomitant]
     Dosage: UNK
     Route: 058
     Dates: start: 20030306, end: 20030310
  49. DOPAMINE HCL [Concomitant]
     Indication: PRODUCT USED FOR UNKNOWN INDICATION
     Dosage: 2.5MCG/KG/MIN
     Route: 042
     Dates: start: 20030307, end: 20030308

REACTIONS (9)
  - RENAL IMPAIRMENT [None]
  - RENAL INJURY [None]
  - RENAL FAILURE [None]
  - ANXIETY [None]
  - FEAR [None]
  - PAIN [None]
  - STRESS [None]
  - EMOTIONAL DISTRESS [None]
  - UNEVALUABLE EVENT [None]
